FAERS Safety Report 4875799-0 (Version None)
Quarter: 2006Q1

REPORT INFORMATION
  Report Type: 
  Country: None (occurrence: None)
  Receive Date: 20060106
  Receipt Date: 20051227
  Transmission Date: 20060701
  Serious: Yes (Hospitalization, Other)
  Sender: FDA-Public Use
  Company Number: 2005BI021646

PATIENT
  Age: 55 Year
  Sex: Female
  Weight: 75.7507 kg

DRUGS (8)
  1. AVONEX [Suspect]
     Indication: MULTIPLE SCLEROSIS
     Dosage: 30 UG QW IM
     Route: 030
     Dates: start: 20000101, end: 20030801
  2. AVONEX [Suspect]
     Indication: MULTIPLE SCLEROSIS
     Dosage: 30 UG QW IM
     Route: 030
     Dates: start: 20030801
  3. PROZAC [Concomitant]
  4. COREG [Concomitant]
  5. DIOVAN [Concomitant]
  6. VITAMINS [Concomitant]
  7. ZANAFLEX [Concomitant]
  8. BACLOFEN [Concomitant]

REACTIONS (3)
  - CARDIAC FAILURE CONGESTIVE [None]
  - INFECTED SKIN ULCER [None]
  - SKIN LACERATION [None]
